FAERS Safety Report 8600789-1 (Version None)
Quarter: 2012Q3

REPORT INFORMATION
  Report Type: 
  Country: None (occurrence: None)
  Receive Date: 20120806
  Receipt Date: 20120622
  Transmission Date: 20120928
  Serious: Yes (Other)
  Sender: FDA-Public Use
  Company Number: COL_12075_2012

PATIENT
  Sex: Male

DRUGS (6)
  1. AVODART [Concomitant]
  2. DIURETICS [Concomitant]
  3. PREVIDENT 5000 PLUS SPEARMINT TOOTHPASTE [Suspect]
     Indication: DENTAL CARIES
     Dosage: THIN STRIP TO TOOTHBRUSH, BID, ORAL
     Route: 048
     Dates: start: 20120501
  4. COUMADIN [Suspect]
  5. METOPOROLOL [Concomitant]
  6. DETROL [Concomitant]

REACTIONS (2)
  - DRUG INTERACTION [None]
  - INTERNATIONAL NORMALISED RATIO INCREASED [None]
